FAERS Safety Report 17686451 (Version 2)
Quarter: 2025Q2

REPORT INFORMATION
  Report Type: Spontaneous
  Country: US (occurrence: US)
  Receive Date: 20200420
  Receipt Date: 20250627
  Transmission Date: 20250717
  Serious: Yes (Other)
  Sender: PURDUE
  Company Number: US-NAPPMUNDI-USA-2020-0151228

PATIENT

DRUGS (3)
  1. OXYCONTIN [Suspect]
     Active Substance: OXYCODONE HYDROCHLORIDE
     Indication: Pain
     Route: 048
  2. OXYCODONE HYDROCHLORIDE [Suspect]
     Active Substance: OXYCODONE HYDROCHLORIDE
     Indication: Pain
     Dosage: 30 MILLIGRAM, DAILY
     Route: 065
  3. MORPHINE SULFATE [Suspect]
     Active Substance: MORPHINE SULFATE
     Indication: Pain
     Dosage: 30 MILLIGRAM, DAILY
     Route: 065

REACTIONS (6)
  - Nephrolithiasis [Unknown]
  - Drug dependence [Unknown]
  - Symptom masked [Unknown]
  - Child abuse [Unknown]
  - Impaired work ability [Unknown]
  - Loss of personal independence in daily activities [Recovering/Resolving]
